FAERS Safety Report 21782242 (Version 1)
Quarter: 2022Q4

REPORT INFORMATION
  Report Type: Spontaneous
  Country: US (occurrence: None)
  Receive Date: 20221223
  Receipt Date: 20221223
  Transmission Date: 20230112
  Serious: Yes (Hospitalization, Other)
  Sender: FDA-Public Use
  Company Number: None

PATIENT
  Age: 59 Year
  Sex: Female

DRUGS (1)
  1. AXICABTAGENE CILOLEUCEL [Suspect]
     Active Substance: AXICABTAGENE CILOLEUCEL
     Indication: Follicular lymphoma
     Dosage: OTHER FREQUENCY : ONCE;?
     Route: 041
     Dates: start: 20220816, end: 20220816

REACTIONS (7)
  - Neurotoxicity [None]
  - Aphasia [None]
  - Immune effector cell-associated neurotoxicity syndrome [None]
  - Rash [None]
  - Erythema multiforme [None]
  - Cytokine release syndrome [None]
  - Neurological decompensation [None]

NARRATIVE: CASE EVENT DATE: 20220821
